FAERS Safety Report 7045349-1 (Version None)
Quarter: 2010Q4

REPORT INFORMATION
  Report Type: 
  Country: None (occurrence: None)
  Receive Date: 20101014
  Receipt Date: 20100824
  Transmission Date: 20110411
  Serious: No
  Sender: FDA-Public Use
  Company Number: US-ALLERGAN-1010813US

PATIENT
  Age: 46 Year
  Sex: Female

DRUGS (2)
  1. LATISSE [Suspect]
     Indication: GROWTH OF EYELASHES
     Dosage: UNK
     Dates: start: 20100601, end: 20100701
  2. LATISSE APPLICATOR [Concomitant]

REACTIONS (5)
  - ERYTHEMA OF EYELID [None]
  - EYELIDS PRURITUS [None]
  - HAIR GROWTH ABNORMAL [None]
  - MADAROSIS [None]
  - WRONG TECHNIQUE IN DRUG USAGE PROCESS [None]
